FAERS Safety Report 8127561-3 (Version None)
Quarter: 2011Q4

REPORT INFORMATION
  Report Type: 
  Country: None (occurrence: None)
  Receive Date: 20111227
  Receipt Date: 20111012
  Transmission Date: 20120403
  Serious: No
  Sender: FDA-Public Use
  Company Number: PHEH2011US02177

PATIENT
  Age: 30 Year
  Sex: Female

DRUGS (7)
  1. GILENYA [Suspect]
     Indication: MULTIPLE SCLEROSIS
     Dosage: 0.5MG, DAILY, ORAL
     Route: 048
     Dates: start: 20110809
  2. ADVIL (MEFENAMIC ACID) [Concomitant]
  3. MECLIZINE [Concomitant]
  4. PAROXETINE HCL [Concomitant]
  5. VITAMIN D [Concomitant]
  6. HYOSCINE HBR HYT [Concomitant]
  7. AMANTADINE HCL [Concomitant]

REACTIONS (1)
  - PAIN [None]
